FAERS Safety Report 24568745 (Version 1)
Quarter: 2024Q4

REPORT INFORMATION
  Report Type: Spontaneous
  Country: US (occurrence: US)
  Receive Date: 20241031
  Receipt Date: 20241031
  Transmission Date: 20250115
  Serious: No
  Sender: REGENERON
  Company Number: US-REGENERON PHARMACEUTICALS, INC.-2023-148401

PATIENT
  Sex: Male

DRUGS (2)
  1. LIBTAYO [Suspect]
     Active Substance: CEMIPLIMAB-RWLC
     Indication: Squamous cell carcinoma of skin
     Dosage: 350 MG, Q3W
     Route: 042
     Dates: start: 20230914, end: 20231006
  2. KEYTRUDA [Suspect]
     Active Substance: PEMBROLIZUMAB
     Indication: Product used for unknown indication

REACTIONS (3)
  - Intentional dose omission [Unknown]
  - Drug ineffective [Unknown]
  - Dermatitis [Unknown]
